FAERS Safety Report 9592922 (Version 1)
Quarter: 2013Q3

REPORT INFORMATION
  Report Type: Spontaneous
  Country: US (occurrence: None)
  Receive Date: 20130930
  Receipt Date: 20130930
  Transmission Date: 20140515
  Serious: Yes (Other)
  Sender: FDA-Public Use
  Company Number: 1000046108

PATIENT
  Sex: Female

DRUGS (1)
  1. LINZESS [Suspect]
     Dates: start: 20130620

REACTIONS (1)
  - Flatulence [None]
